FAERS Safety Report 6852089-8 (Version None)
Quarter: 2010Q3

REPORT INFORMATION
  Report Type: 
  Country: None (occurrence: None)
  Receive Date: 20100717
  Receipt Date: 20080211
  Transmission Date: 20110219
  Serious: No
  Sender: FDA-Public Use
  Company Number: US-PFIZER INC-2007093121

PATIENT
  Age: 66 Year
  Sex: Female
  Weight: 104.33 kg

DRUGS (4)
  1. CHANTIX [Suspect]
     Indication: SMOKING CESSATION THERAPY
     Route: 048
  2. PREMARIN [Concomitant]
  3. VYTORIN [Concomitant]
  4. SYNTHROID [Concomitant]

REACTIONS (1)
  - ABNORMAL DREAMS [None]
